FAERS Safety Report 18689084 (Version 1)
Quarter: 2020Q4

REPORT INFORMATION
  Report Type: Report from Study
  Country: US (occurrence: US)
  Receive Date: 20201231
  Receipt Date: 20201231
  Transmission Date: 20210114
  Serious: Yes (Hospitalization)
  Sender: FDA-Public Use
  Company Number: US-CHIASMA-2020CHI00055

PATIENT
  Sex: Male
  Weight: 112.93 kg

DRUGS (1)
  1. MYCAPSSA [Suspect]
     Active Substance: OCTREOTIDE
     Indication: ACROMEGALY
     Dosage: 40 MG PER DAY
     Route: 048
     Dates: start: 20190301, end: 20201213

REACTIONS (2)
  - Cholelithiasis [Recovered/Resolved]
  - Cholecystitis infective [Recovered/Resolved]
